FAERS Safety Report 4634139-2 (Version None)
Quarter: 2005Q2

REPORT INFORMATION
  Report Type: 
  Country: None (occurrence: None)
  Receive Date: 20050413
  Receipt Date: 20050329
  Transmission Date: 20051028
  Serious: Yes (Life-Threatening, Disabling)
  Sender: FDA-Public Use
  Company Number: US-MERCK-0503USA05166

PATIENT
  Age: 67 Year
  Sex: Female

DRUGS (3)
  1. VIOXX [Suspect]
     Indication: PAIN
     Route: 048
     Dates: start: 20040628, end: 20040601
  2. METOPROLOL [Concomitant]
     Route: 065
  3. COREG [Concomitant]
     Route: 065

REACTIONS (4)
  - DYSURIA [None]
  - HYPERTENSION [None]
  - RENAL DISORDER [None]
  - RENAL FAILURE ACUTE [None]
